FAERS Safety Report 22164795 (Version 3)
Quarter: 2024Q3

REPORT INFORMATION
  Report Type: Report from Study
  Country: US (occurrence: US)
  Receive Date: 20230403
  Receipt Date: 20240702
  Transmission Date: 20241016
  Serious: Yes (Other)
  Sender: ABBVIE
  Company Number: US-ABBVIE-4710918

PATIENT
  Age: 78 Year
  Sex: Female

DRUGS (2)
  1. SKYRIZI [Suspect]
     Active Substance: RISANKIZUMAB-RZAA
     Indication: Psoriasis
     Dosage: LAST ADMIN DATE- 2022
     Route: 058
     Dates: start: 20220405
  2. SKYRIZI [Suspect]
     Active Substance: RISANKIZUMAB-RZAA
     Route: 058
     Dates: start: 20220712

REACTIONS (8)
  - Fall [Unknown]
  - Fall [Recovering/Resolving]
  - Restless legs syndrome [Unknown]
  - Pneumothorax [Unknown]
  - Tremor [Recovering/Resolving]
  - Hiatus hernia [Unknown]
  - Dysstasia [Unknown]
  - Aneurysm [Unknown]

NARRATIVE: CASE EVENT DATE: 20230101
